FAERS Safety Report 19507856 (Version 1)
Quarter: 2021Q3

REPORT INFORMATION
  Report Type: Spontaneous
  Country: JP (occurrence: JP)
  Receive Date: 20210708
  Receipt Date: 20210708
  Transmission Date: 20211014
  Serious: Yes (Hospitalization, Other)
  Sender: FDA-Public Use
  Company Number: JP-B.I. PHARMACEUTICALS,INC./RIDGEFIELD-2021-BI-114079

PATIENT

DRUGS (4)
  1. BI?SIFROL [Suspect]
     Active Substance: PRAMIPEXOLE
     Indication: RESTLESS LEGS SYNDROME
     Route: 048
  2. BI?SIFROL [Suspect]
     Active Substance: PRAMIPEXOLE
     Route: 048
  3. REGNITE [Concomitant]
     Active Substance: GABAPENTIN ENACARBIL
     Indication: PRODUCT USED FOR UNKNOWN INDICATION
     Route: 048
  4. BI?SIFROL [Suspect]
     Active Substance: PRAMIPEXOLE
     Route: 048

REACTIONS (2)
  - Bladder cancer [Unknown]
  - Therapeutic product effect incomplete [Unknown]
